FAERS Safety Report 6044661-2 (Version None)
Quarter: 2009Q1

REPORT INFORMATION
  Report Type: 
  Country: None (occurrence: None)
  Receive Date: 20090120
  Receipt Date: 20090108
  Transmission Date: 20090719
  Serious: Yes (Hospitalization)
  Sender: FDA-Public Use
  Company Number: GB-ROCHE-607284

PATIENT
  Sex: Male

DRUGS (13)
  1. MYCOPHENOLATE MOFETIL [Suspect]
     Indication: ANTI-NEUTROPHIL CYTOPLASMIC ANTIBODY POSITIVE VASCULITIS
     Route: 065
     Dates: end: 20080728
  2. MYCOPHENOLATE MOFETIL [Suspect]
     Route: 065
     Dates: start: 20081208
  3. CYCLOPHOSPHAMIDE [Suspect]
     Indication: ANTI-NEUTROPHIL CYTOPLASMIC ANTIBODY POSITIVE VASCULITIS
     Route: 042
     Dates: start: 20080728
  4. ADIZEM XL [Concomitant]
  5. AMPHOTERICIN B [Concomitant]
     Route: 048
  6. ASPIRIN [Concomitant]
  7. AZATHIOPRINE [Concomitant]
  8. CALCICHEW [Concomitant]
  9. COTRIM [Concomitant]
  10. PREDNISOLONE [Concomitant]
  11. PREGABALIN [Concomitant]
  12. RANITIDINE [Concomitant]
  13. SERETIDE [Concomitant]
     Dosage: DRUG REPORTED AS: ^SERETIDE EVOHALER^

REACTIONS (1)
  - VASCULITIS [None]
